FAERS Safety Report 21071866 (Version 1)
Quarter: 2022Q3

REPORT INFORMATION
  Report Type: Spontaneous
  Country: US (occurrence: US)
  Receive Date: 20220712
  Receipt Date: 20220712
  Transmission Date: 20221026
  Serious: No
  Sender: FDA-Public Use
  Company Number: US-NOVOPROD-926870

PATIENT
  Age: 51 Year
  Sex: Female

DRUGS (2)
  1. RYBELSUS [Suspect]
     Active Substance: SEMAGLUTIDE
     Indication: Ocular discomfort
  2. RYBELSUS [Suspect]
     Active Substance: SEMAGLUTIDE
     Indication: Vision blurred
     Dosage: 3 MG
     Route: 048
     Dates: start: 20220313, end: 20220401

REACTIONS (3)
  - Vision blurred [Not Recovered/Not Resolved]
  - Nausea [Recovered/Resolved]
  - Off label use [Unknown]

NARRATIVE: CASE EVENT DATE: 20220313
